FAERS Safety Report 19488228 (Version 1)
Quarter: 2021Q3

REPORT INFORMATION
  Report Type: Spontaneous
  Country: US (occurrence: US)
  Receive Date: 20210702
  Receipt Date: 20210702
  Transmission Date: 20211014
  Serious: No
  Sender: FDA-Public Use
  Company Number: US-BIOCRYST-2021BCR00152

PATIENT
  Sex: Female

DRUGS (1)
  1. ORLADEYO [Suspect]
     Active Substance: BEROTRALSTAT HYDROCHLORIDE
     Dosage: UNK
     Route: 048
     Dates: start: 202101

REACTIONS (1)
  - Gastroenteritis viral [Recovered/Resolved]
